FAERS Safety Report 7961017-3 (Version None)
Quarter: 2011Q4

REPORT INFORMATION
  Report Type: 
  Country: None (occurrence: None)
  Receive Date: 20111207
  Receipt Date: 20111202
  Transmission Date: 20120403
  Serious: No
  Sender: FDA-Public Use
  Company Number: US-PFIZER INC-2011294991

PATIENT
  Sex: Female
  Weight: 109 kg

DRUGS (2)
  1. GABAPENTIN [Suspect]
     Indication: PAIN
     Dosage: 400 MG, 2X/DAY
     Route: 048
     Dates: start: 20100501
  2. SUBOXONE [Concomitant]
     Indication: DRUG DEPENDENCE
     Dosage: 8MG/2MG ONE AND HALF TABLET SUBLINGUAL ONCE A DAY
     Route: 060

REACTIONS (1)
  - DRUG SCREEN POSITIVE [None]
